FAERS Safety Report 14568658 (Version 1)
Quarter: 2018Q1

REPORT INFORMATION
  Report Type: Spontaneous
  Country: FR (occurrence: FR)
  Receive Date: 20180223
  Receipt Date: 20180223
  Transmission Date: 20180509
  Serious: Yes (Hospitalization)
  Sender: FDA-Public Use
  Company Number: FR-009507513-1802FRA006631

PATIENT
  Age: 87 Year
  Sex: Female
  Weight: 49 kg

DRUGS (6)
  1. NORSET [Suspect]
     Active Substance: MIRTAZAPINE
     Indication: COGNITIVE DISORDER
     Dosage: 15 MG, UNK
     Route: 048
     Dates: start: 20170214, end: 20170220
  2. LANTUS [Concomitant]
     Active Substance: INSULIN GLARGINE
     Indication: TYPE 1 DIABETES MELLITUS
     Dosage: 16 IU, UNK
     Route: 058
  3. PREVISCAN (FLUINDIONE) [Concomitant]
     Active Substance: FLUINDIONE
     Dosage: 0.25 DF, UNK
     Route: 048
  4. AMIODARONE [Concomitant]
     Active Substance: AMIODARONE
     Indication: ATRIAL FIBRILLATION
     Dosage: 200 MG, UNK
     Route: 048
  5. LASILIX [Concomitant]
     Active Substance: FUROSEMIDE
     Dosage: 60 MG EVERY OTHER DAY
     Route: 048
  6. BISOPROLOL FUMARATE. [Concomitant]
     Active Substance: BISOPROLOL FUMARATE
     Dosage: 1.25 MG, UNK
     Route: 048

REACTIONS (3)
  - General physical health deterioration [Recovered/Resolved]
  - Confusional state [Recovered/Resolved]
  - Abnormal behaviour [Recovered/Resolved]

NARRATIVE: CASE EVENT DATE: 20170214
